FAERS Safety Report 10433068 (Version 1)
Quarter: 2014Q3

REPORT INFORMATION
  Report Type: Spontaneous
  Country: IT (occurrence: IT)
  Receive Date: 20140905
  Receipt Date: 20140905
  Transmission Date: 20150326
  Serious: Yes (Hospitalization)
  Sender: FDA-Public Use
  Company Number: IT-TEVA-505494ISR

PATIENT
  Sex: Male

DRUGS (7)
  1. LEVODOPA [Suspect]
     Active Substance: LEVODOPA
     Indication: MULTIPLE SYSTEM ATROPHY
     Dosage: 400 MILLIGRAM DAILY; 400 MG/DAY, INCREASED TO 600 MG/DAY
     Route: 065
  2. LEVODOPA [Suspect]
     Active Substance: LEVODOPA
     Indication: MULTIPLE SYSTEM ATROPHY
     Dosage: 1000 MILLIGRAM DAILY; 1000 MG/DAY
     Route: 065
  3. ROPINIROLE. [Suspect]
     Active Substance: ROPINIROLE
     Dosage: DOSES WERE HALVED
  4. ROPINIROLE. [Suspect]
     Active Substance: ROPINIROLE
     Indication: MULTIPLE SYSTEM ATROPHY
     Dosage: 8 MILLIGRAM DAILY; 8 MG/DAY. CONTROLLED RELEASE
     Route: 065
  5. ROPINIROLE. [Suspect]
     Active Substance: ROPINIROLE
     Indication: MULTIPLE SYSTEM ATROPHY
     Dosage: 4 MG/DAY, SELF-INCREASED TO 8 MG/DAY. CONTROLLED RELEASE
     Route: 065
  6. LEVODOPA [Suspect]
     Active Substance: LEVODOPA
     Indication: MULTIPLE SYSTEM ATROPHY
     Dosage: 600 MILLIGRAM DAILY; 600 MG/DAY, SELF-INCREASED TO 1000 MG/DAY
     Route: 065
  7. LEVODOPA [Suspect]
     Active Substance: LEVODOPA
     Dosage: DOSES WERE HALVED

REACTIONS (6)
  - Compulsive sexual behaviour [Recovered/Resolved]
  - Dyskinesia [Unknown]
  - Alcohol abuse [Recovering/Resolving]
  - Pathological gambling [Recovering/Resolving]
  - Dopamine dysregulation syndrome [Unknown]
  - Polydipsia psychogenic [Unknown]
